FAERS Safety Report 9551638 (Version 1)
Quarter: 2013Q3

REPORT INFORMATION
  Report Type: Spontaneous
  Country: US (occurrence: None)
  Receive Date: 20130724
  Receipt Date: 20130724
  Transmission Date: 20140515
  Serious: Yes (Other)
  Sender: FDA-Public Use
  Company Number: PHEH2012US012712

PATIENT
  Age: 34 Year
  Sex: Male

DRUGS (2)
  1. GLEEVEC [Suspect]
     Indication: GASTRIC CANCER
     Route: 048
  2. NEUPOGEN (FILGRASTIM) [Concomitant]

REACTIONS (7)
  - Leukopenia [None]
  - Viral infection [None]
  - Diarrhoea [None]
  - Vomiting [None]
  - Nasopharyngitis [None]
  - Malaise [None]
  - Neutropenia [None]
